FAERS Safety Report 10202554 (Version 1)
Quarter: 2014Q2

REPORT INFORMATION
  Report Type: Spontaneous
  Country: DK (occurrence: DK)
  Receive Date: 20140528
  Receipt Date: 20140528
  Transmission Date: 20141212
  Serious: Yes (Hospitalization)
  Sender: FDA-Public Use
  Company Number: ALCN2014DK003143

PATIENT
  Age: 29 Year
  Sex: Female

DRUGS (1)
  1. TOBRADEX [Suspect]
     Indication: CONJUNCTIVITIS
     Dosage: 1 GTT, TID
     Route: 047
     Dates: start: 20140205, end: 20140208

REACTIONS (1)
  - Rash generalised [Unknown]
